FAERS Safety Report 16426263 (Version 4)
Quarter: 2020Q2

REPORT INFORMATION
  Report Type: Report from Study
  Country: US (occurrence: US)
  Receive Date: 20190613
  Receipt Date: 20200416
  Transmission Date: 20200713
  Serious: Yes (Other)
  Sender: FDA-Public Use
  Company Number: PHEH2019US024168

PATIENT
  Sex: Female

DRUGS (3)
  1. AFINITOR DISPERZ [Suspect]
     Active Substance: EVEROLIMUS
     Dosage: 9 MG
     Route: 048
     Dates: start: 20190617
  2. AFINITOR DISPERZ [Suspect]
     Active Substance: EVEROLIMUS
     Indication: ASTROCYTOMA, LOW GRADE
     Dosage: 9 MG, QD (ONCE DAILY)
     Route: 048
     Dates: start: 20180801
  3. AFINITOR DISPERZ [Suspect]
     Active Substance: EVEROLIMUS
     Dosage: 6 MG, QD
     Route: 048

REACTIONS (3)
  - Somnolence [Unknown]
  - Seizure [Not Recovered/Not Resolved]
  - Lethargy [Unknown]
